FAERS Safety Report 7492141-X (Version None)
Quarter: 2011Q1

REPORT INFORMATION
  Report Type: 
  Country: None (occurrence: None)
  Receive Date: 20110318
  Receipt Date: 20100122
  Transmission Date: 20110831
  Serious: Yes (Other)
  Sender: FDA-Public Use
  Company Number: 2010SP004917

PATIENT
  Age: 59 Year
  Sex: Female
  Weight: 72.6 kg

DRUGS (16)
  1. RIBASPHERE [Suspect]
     Indication: HEPATITIS C
     Dosage: PO, 600 MG; BID; PO
     Route: 048
     Dates: start: 20070101
  2. ONDANSETRON [Concomitant]
  3. NEULASTA [Concomitant]
  4. COPEGUS [Suspect]
     Indication: HEPATITIS C
     Dosage: PO
     Route: 048
     Dates: start: 20041029, end: 20050701
  5. CALCIUM CARBONATE [Concomitant]
  6. PEG-INTRON [Suspect]
     Indication: HEPATITIS C
  7. RIBAVIRIN [Suspect]
     Indication: HEPATITIS C
     Dosage: 1200 MG; QD; PO
     Route: 048
     Dates: start: 20080316
  8. EFFEXOR [Concomitant]
  9. ATIVAN [Concomitant]
  10. LECITHIN [Concomitant]
  11. VITAMIN E [Concomitant]
  12. URSODIOL [Concomitant]
  13. MAGNESIUM SULFATE [Concomitant]
  14. PEGASYS [Suspect]
     Indication: HEPATITIS C
     Dosage: SC, 180 MCG; QW; SC
     Route: 058
     Dates: start: 20041029, end: 20050701
  15. PEGASYS [Suspect]
     Indication: HEPATITIS C
     Dosage: SC, 180 MCG; QW; SC
     Route: 058
     Dates: start: 20080316
  16. STROVITE [Concomitant]

REACTIONS (24)
  - VIITH NERVE PARALYSIS [None]
  - WHITE BLOOD CELL COUNT DECREASED [None]
  - FATIGUE [None]
  - DECREASED APPETITE [None]
  - LIMB INJURY [None]
  - GINGIVAL DISORDER [None]
  - DIZZINESS [None]
  - DEPRESSION [None]
  - NAUSEA [None]
  - VOMITING [None]
  - HEAD INJURY [None]
  - OROPHARYNGEAL PAIN [None]
  - INSOMNIA [None]
  - NASOPHARYNGITIS [None]
  - DRUG DOSE OMISSION [None]
  - CONTUSION [None]
  - INJURY [None]
  - TOOTH DISORDER [None]
  - HEADACHE [None]
  - FALL [None]
  - EAR PAIN [None]
  - FEELING ABNORMAL [None]
  - ARTHRALGIA [None]
  - HYPERHIDROSIS [None]
